FAERS Safety Report 26130812 (Version 1)
Quarter: 2025Q4

REPORT INFORMATION
  Report Type: Spontaneous
  Country: US (occurrence: None)
  Receive Date: 20251208
  Receipt Date: 20251208
  Transmission Date: 20260117
  Serious: Yes (Hospitalization)
  Sender: FDA-CTU
  Company Number: None

PATIENT
  Age: 81 Year
  Sex: Male

DRUGS (1)
  1. IXEKIZUMAB [Suspect]
     Active Substance: IXEKIZUMAB
     Indication: Psoriasis
     Dosage: 80 MG  SQ
     Route: 058
     Dates: start: 20250707

REACTIONS (3)
  - Injection site nodule [None]
  - Infusion site mass [None]
  - Metastatic renal cell carcinoma [None]

NARRATIVE: CASE EVENT DATE: 20251021
